FAERS Safety Report 5020804-4 (Version None)
Quarter: 2006Q2

REPORT INFORMATION
  Report Type: 
  Country: None (occurrence: None)
  Receive Date: 20060608
  Receipt Date: 20060602
  Transmission Date: 20061013
  Serious: Yes (Other)
  Sender: FDA-Public Use
  Company Number: US-JNJFOC-20060601153

PATIENT
  Age: 50 Year
  Sex: Female

DRUGS (2)
  1. DURAGESIC-100 [Suspect]
     Indication: PAIN
     Route: 062
  2. ZELNORM [Concomitant]

REACTIONS (3)
  - MUSCLE TWITCHING [None]
  - NAUSEA [None]
  - TREMOR [None]
